FAERS Safety Report 24160757 (Version 1)
Quarter: 2024Q3

REPORT INFORMATION
  Report Type: Report from Study
  Country: US (occurrence: None)
  Receive Date: 20240801
  Receipt Date: 20240801
  Transmission Date: 20241016
  Serious: Yes (Hospitalization, Disabling, Other)
  Sender: ASTRAZENECA
  Company Number: 2024A169772

PATIENT
  Sex: Female

DRUGS (1)
  1. TRUQAP [Suspect]
     Active Substance: CAPIVASERTIB
     Indication: Breast cancer female
     Route: 048
     Dates: start: 20240217

REACTIONS (7)
  - Fall [Unknown]
  - Pain [Unknown]
  - Gait disturbance [Unknown]
  - Spinal fracture [Unknown]
  - Headache [Unknown]
  - Heart rate increased [Unknown]
  - Product dose omission issue [Unknown]
